FAERS Safety Report 5930410-2 (Version None)
Quarter: 2008Q4

REPORT INFORMATION
  Report Type: 
  Country: None (occurrence: None)
  Receive Date: 20081022
  Receipt Date: 20081015
  Transmission Date: 20090506
  Serious: Yes (Other)
  Sender: FDA-Public Use
  Company Number: 2008SP019287

PATIENT
  Age: 56 Year
  Sex: Female

DRUGS (2)
  1. PEG-INTRON [Suspect]
     Indication: HEPATITIS C
     Dates: start: 20040101, end: 20050401
  2. PEGASYS [Suspect]
     Indication: HEPATITIS C
     Dates: start: 20050401

REACTIONS (4)
  - CARDIAC DISORDER [None]
  - CATARACT [None]
  - DRUG INEFFECTIVE [None]
  - OSTEOPOROSIS [None]
